FAERS Safety Report 20209396 (Version 2)
Quarter: 2022Q1

REPORT INFORMATION
  Report Type: Spontaneous
  Country: GB (occurrence: GB)
  Receive Date: 20211220
  Receipt Date: 20220111
  Transmission Date: 20220423
  Serious: Yes (Hospitalization, Other)
  Sender: FDA-Public Use
  Company Number: GB-MHRA-EYC 00268687

PATIENT
  Age: 66 Year
  Sex: Female
  Weight: 71 kg

DRUGS (4)
  1. CEPHALEXIN [Suspect]
     Active Substance: CEPHALEXIN
     Indication: Pyelonephritis acute
     Dosage: 500MG TDS
     Route: 048
     Dates: start: 20211101, end: 20211110
  2. CEPHALEXIN [Suspect]
     Active Substance: CEPHALEXIN
     Indication: Pyelonephritis acute
  3. IBUPROFEN [Suspect]
     Active Substance: IBUPROFEN
     Indication: Pyelonephritis acute
     Dosage: 400MG TDS
     Route: 048
     Dates: start: 20211101, end: 20211110
  4. IBUPROFEN [Suspect]
     Active Substance: IBUPROFEN
     Indication: Pyelonephritis acute

REACTIONS (2)
  - Erythema multiforme [Recovering/Resolving]
  - Off label use [Unknown]

NARRATIVE: CASE EVENT DATE: 20211108
